FAERS Safety Report 9380209 (Version 1)
Quarter: 2013Q3

REPORT INFORMATION
  Report Type: Report from Study
  Country: GB (occurrence: GB)
  Receive Date: 20130702
  Receipt Date: 20130702
  Transmission Date: 20140515
  Serious: Yes (Hospitalization)
  Sender: FDA-Public Use
  Company Number: AE-ASTRAZENECA-2013SE48278

PATIENT
  Age: 22006 Day
  Sex: Female
  Weight: 49.1 kg

DRUGS (13)
  1. ZD6474 [Suspect]
     Indication: PANCREATIC CARCINOMA
     Route: 048
     Dates: start: 20120718, end: 20120910
  2. ZD6474 [Suspect]
     Indication: PANCREATIC CARCINOMA
     Route: 048
     Dates: start: 20120911, end: 20130325
  3. ZD6474 [Suspect]
     Indication: PANCREATIC CARCINOMA
     Route: 048
     Dates: start: 20130507, end: 20130521
  4. GEMCITABINE [Suspect]
     Indication: PANCREATIC CARCINOMA
     Route: 042
     Dates: start: 20120718, end: 20130325
  5. GEMCITABINE [Suspect]
     Indication: PANCREATIC CARCINOMA
     Route: 042
     Dates: start: 20130507, end: 20130521
  6. CO-CODAMOL [Concomitant]
     Indication: PAIN
     Route: 048
     Dates: start: 20120709
  7. CREON [Concomitant]
     Indication: PANCREATIC INSUFFICIENCY
     Route: 048
     Dates: start: 20120709
  8. LOPERAMIDE [Concomitant]
     Indication: DIARRHOEA
     Route: 048
     Dates: start: 20120215
  9. ADCAL [Concomitant]
     Indication: HYPOCALCAEMIA
     Route: 048
     Dates: start: 20130312
  10. RAMIPRIL [Concomitant]
     Indication: HYPERTENSION
     Route: 048
     Dates: start: 20130521
  11. AMLODIPINE [Concomitant]
     Indication: HYPERTENSION
     Route: 048
     Dates: start: 20130522
  12. PREDNISOLONE [Concomitant]
     Indication: WHITE BLOOD CELL COUNT INCREASED
     Route: 048
     Dates: start: 20130601
  13. PREDNISOLONE [Concomitant]
     Indication: RASH
     Route: 048
     Dates: start: 20130601

REACTIONS (1)
  - Renal failure acute [Not Recovered/Not Resolved]
